FAERS Safety Report 15385369 (Version 1)
Quarter: 2018Q3

REPORT INFORMATION
  Report Type: Spontaneous
  Country: IR (occurrence: IR)
  Receive Date: 20180914
  Receipt Date: 20180914
  Transmission Date: 20181010
  Serious: Yes (Other)
  Sender: FDA-Public Use
  Company Number: IR-ELI_LILLY_AND_COMPANY-IR201809004490

PATIENT
  Age: 42 Year
  Sex: Male

DRUGS (1)
  1. TADALAFIL [Suspect]
     Active Substance: TADALAFIL
     Indication: ERECTILE DYSFUNCTION
     Dosage: 20 MG, 2/W, BEFORE SEXUAL INTERCOURSE
     Route: 065
     Dates: start: 2010

REACTIONS (1)
  - Optic ischaemic neuropathy [Not Recovered/Not Resolved]
